FAERS Safety Report 5116869-1 (Version None)
Quarter: 2006Q3

REPORT INFORMATION
  Report Type: 
  Country: None (occurrence: None)
  Receive Date: 20060928
  Receipt Date: 20060905
  Transmission Date: 20061208
  Serious: Yes (Other)
  Sender: FDA-Public Use
  Company Number: 2006CG01524

PATIENT
  Age: 59 Year
  Sex: Male

DRUGS (6)
  1. CRESTOR [Suspect]
     Indication: HYPERCHOLESTEROLAEMIA
     Route: 048
     Dates: start: 20060101, end: 20060729
  2. ALLOPURINOL [Suspect]
     Indication: BLOOD URIC ACID INCREASED
     Dates: start: 20050101, end: 20060729
  3. METFORMIN HCL [Suspect]
     Indication: DIABETES MELLITUS
     Dates: start: 20050101, end: 20060729
  4. COKENZEN [Concomitant]
     Dates: start: 20040301
  5. SECTRAL [Concomitant]
     Dates: start: 20040301
  6. ASPIRIN [Concomitant]
     Dates: start: 20040301

REACTIONS (5)
  - CYTOLYTIC HEPATITIS [None]
  - JAUNDICE CHOLESTATIC [None]
  - MYALGIA [None]
  - PYREXIA [None]
  - VOMITING [None]
